FAERS Safety Report 7911193-3 (Version None)
Quarter: 2011Q4

REPORT INFORMATION
  Report Type: 
  Country: None (occurrence: None)
  Receive Date: 20111114
  Receipt Date: 20111102
  Transmission Date: 20120403
  Serious: Yes (Disabling)
  Sender: FDA-Public Use
  Company Number: GB-RANBAXY-2011R1-46854

PATIENT
  Sex: Female
  Weight: 51 kg

DRUGS (1)
  1. LISINOPRIL [Suspect]
     Indication: HYPERTENSION
     Dosage: 10 MG, UNK
     Route: 048
     Dates: start: 20100201, end: 20110201

REACTIONS (13)
  - SERUM FERRITIN INCREASED [None]
  - RENAL IMPAIRMENT [None]
  - WEIGHT DECREASED [None]
  - DYSPHAGIA [None]
  - RED BLOOD CELL SEDIMENTATION RATE INCREASED [None]
  - NORMOCHROMIC NORMOCYTIC ANAEMIA [None]
  - TACHYCARDIA [None]
  - DYSGEUSIA [None]
  - MALAISE [None]
  - EOSINOPHILIC OESOPHAGITIS [None]
  - HYPERGAMMAGLOBULINAEMIA [None]
  - COUGH [None]
  - GASTROOESOPHAGEAL REFLUX DISEASE [None]
